FAERS Safety Report 12716673 (Version 2)
Quarter: 2016Q3

REPORT INFORMATION
  Report Type: Report from Study
  Country: US (occurrence: US)
  Receive Date: 20160906
  Receipt Date: 20160906
  Transmission Date: 20161109
  Serious: Yes (Other)
  Sender: FDA-Public Use
  Company Number: US-JNJFOC-20160827368

PATIENT
  Sex: Male
  Weight: 37.65 kg

DRUGS (2)
  1. REMICADE [Suspect]
     Active Substance: INFLIXIMAB
     Indication: CROHN^S DISEASE
     Route: 042
  2. REMICADE [Suspect]
     Active Substance: INFLIXIMAB
     Indication: CROHN^S DISEASE
     Route: 042
     Dates: start: 2015, end: 201607

REACTIONS (8)
  - Off label use [Unknown]
  - Haematochezia [Unknown]
  - Asthenia [Unknown]
  - Product use issue [Unknown]
  - Drug effect decreased [Unknown]
  - Frequent bowel movements [Unknown]
  - Antibody test positive [Unknown]
  - Lethargy [Unknown]

NARRATIVE: CASE EVENT DATE: 2015
